FAERS Safety Report 7817054-2 (Version None)
Quarter: 2011Q4

REPORT INFORMATION
  Report Type: 
  Country: None (occurrence: None)
  Receive Date: 20111017
  Receipt Date: 20111005
  Transmission Date: 20120403
  Serious: Yes (Hospitalization, Other)
  Sender: FDA-Public Use
  Company Number: PHHY2010DE57938

PATIENT
  Age: 89 Year
  Sex: Female

DRUGS (2)
  1. EXELON [Suspect]
     Dosage: 4.6 MG/24 H
     Route: 062
     Dates: end: 20100223
  2. EXELON [Suspect]
     Dosage: UNK
     Route: 048

REACTIONS (5)
  - APATHY [None]
  - PRURITUS [None]
  - CEREBROVASCULAR ACCIDENT [None]
  - CEREBRAL HAEMORRHAGE [None]
  - ERYTHEMA [None]
